FAERS Safety Report 10570203 (Version 1)
Quarter: 2014Q4

REPORT INFORMATION
  Report Type: Spontaneous
  Country: JP (occurrence: None)
  Receive Date: 20141105
  Receipt Date: 20141105
  Transmission Date: 20150529
  Serious: Yes (Hospitalization)
  Sender: FDA-Public Use
  Company Number: DX3140120

PATIENT
  Age: 1 Year
  Sex: Female

DRUGS (3)
  1. FENTANYL CITRATE. [Concomitant]
     Active Substance: FENTANYL CITRATE
  2. PRECEDEX [Suspect]
     Active Substance: DEXMEDETOMIDINE HYDROCHLORIDE
     Indication: SEDATION
     Dosage: UNKNOWN ON THE LAST DAY OF DOSING
     Route: 041
  3. MIDAZOLAM [Concomitant]
     Active Substance: MIDAZOLAM\MIDAZOLAM HYDROCHLORIDE

REACTIONS (8)
  - Hyperkalaemia [None]
  - Dehydration [None]
  - Tachycardia [None]
  - Blood pressure decreased [None]
  - Agitation [None]
  - Drug withdrawal syndrome [None]
  - Cardiac failure [None]
  - Pyrexia [None]
